FAERS Safety Report 25944871 (Version 1)
Quarter: 2025Q4

REPORT INFORMATION
  Report Type: Spontaneous
  Country: US (occurrence: US)
  Receive Date: 20251021
  Receipt Date: 20251021
  Transmission Date: 20260117
  Serious: No
  Sender: Phathom Pharmaceuticals
  Company Number: US-PHATHOM PHARMACEUTICALS INC.-2025PHT02258

PATIENT
  Age: 71 Year
  Sex: Female

DRUGS (1)
  1. VOQUEZNA [Suspect]
     Active Substance: VONOPRAZAN FUMARATE
     Indication: Erosive oesophagitis
     Dosage: 20 MG, 1X/DAY
     Route: 048
     Dates: start: 20240824

REACTIONS (6)
  - Respiration abnormal [Unknown]
  - Productive cough [Unknown]
  - Decreased appetite [Unknown]
  - Hypophagia [Unknown]
  - Gastrointestinal obstruction [Unknown]
  - Abdominal discomfort [Unknown]
